FAERS Safety Report 4392038-8 (Version None)
Quarter: 2004Q3

REPORT INFORMATION
  Report Type: 
  Country: None (occurrence: None)
  Receive Date: 20040708
  Receipt Date: 20040416
  Transmission Date: 20050211
  Serious: Yes (Other)
  Sender: FDA-Public Use
  Company Number: PHBS2004JP05200

PATIENT
  Age: 33 Year
  Sex: Male
  Weight: 57 kg

DRUGS (8)
  1. NEORAL [Suspect]
     Indication: RENAL TRANSPLANT
     Dosage: 60 MG/D
     Route: 048
     Dates: end: 20040330
  2. NEORAL [Suspect]
     Dosage: 40 MG/D
     Route: 048
     Dates: start: 20040331, end: 20040413
  3. NEORAL [Suspect]
     Dosage: 30 MG/D
     Dates: start: 20040414
  4. MEDROL [Suspect]
     Indication: RENAL TRANSPLANT
     Dosage: 4 MG/D
     Route: 048
     Dates: start: 19841027
  5. CELLCEPT [Concomitant]
     Indication: RENAL TRANSPLANT
     Dosage: 1000 MG/D
     Route: 048
     Dates: start: 20030201
  6. BLOPRESS [Concomitant]
     Dosage: 4 MG/D
     Route: 048
     Dates: start: 19841027
  7. URINORM [Concomitant]
     Dosage: 100 MG/D
     Route: 048
     Dates: start: 19841027
  8. PRAVASTATIN SODIUM [Concomitant]
     Dosage: 20 MG/D
     Route: 048
     Dates: start: 19841027

REACTIONS (4)
  - DISTURBANCE IN ATTENTION [None]
  - IMPAIRED WORK ABILITY [None]
  - MALAISE [None]
  - NERVOUS SYSTEM DISORDER [None]
